FAERS Safety Report 4802636-2 (Version None)
Quarter: 2005Q4

REPORT INFORMATION
  Report Type: 
  Country: None (occurrence: None)
  Receive Date: 20051014
  Receipt Date: 20050513
  Transmission Date: 20060501
  Serious: Yes (Disabling, Other)
  Sender: FDA-Public Use
  Company Number: 2005074983

PATIENT
  Sex: Female
  Weight: 95.2554 kg

DRUGS (10)
  1. NEURONTIN [Suspect]
     Indication: FIBROMYALGIA
  2. NEURONTIN [Suspect]
     Indication: PAIN
  3. NAPROXEN [Suspect]
     Indication: PAIN
  4. MIRAPEX [Concomitant]
  5. HUMALOG [Concomitant]
  6. CLONAZEPAM [Concomitant]
  7. RELPAX [Concomitant]
  8. OTHER ANTI-ASTHMATICS, INHALANTS(OTHER ANTI-ASTHMATICS, INHALANTS) [Concomitant]
  9. HYDROCODONE BITARTRATE [Concomitant]
  10. ATENOLOL [Concomitant]

REACTIONS (8)
  - BLOOD GLUCOSE INCREASED [None]
  - CONDITION AGGRAVATED [None]
  - DEAFNESS [None]
  - DIABETIC NEUROPATHY [None]
  - FEELING ABNORMAL [None]
  - FEELING DRUNK [None]
  - STOMACH DISCOMFORT [None]
  - TINNITUS [None]
